FAERS Safety Report 4301454-1 (Version None)
Quarter: 2004Q1

REPORT INFORMATION
  Report Type: 
  Country: None (occurrence: None)
  Receive Date: 20040220
  Receipt Date: 20040220
  Transmission Date: 20041129
  Serious: No
  Sender: FDA-Public Use
  Company Number: None

PATIENT
  Age: 56 Year
  Sex: Female
  Weight: 102.0593 kg

DRUGS (11)
  1. LYMPHAZURIN [Suspect]
     Dosage: 5 ML SQ X 1
     Route: 058
     Dates: start: 20040203
  2. DESFLURANE [Concomitant]
  3. MIDOZOLAM [Concomitant]
  4. FENTANYL [Concomitant]
  5. LIDOCAINE [Concomitant]
  6. PROPOFOL [Concomitant]
  7. ROCURONIUM [Concomitant]
  8. PHENYLEPHRINE [Concomitant]
  9. EPHEDRINE [Concomitant]
  10. CEFOTETAN [Concomitant]
  11. HYDROMORPHONE [Concomitant]

REACTIONS (1)
  - URTICARIA [None]
